FAERS Safety Report 12162493 (Version 1)
Quarter: 2016Q1

REPORT INFORMATION
  Report Type: Spontaneous
  Country: US (occurrence: None)
  Receive Date: 20160308
  Receipt Date: 20160308
  Transmission Date: 20160526
  Serious: Yes (Hospitalization)
  Sender: FDA-Public Use
  Company Number: None

PATIENT
  Age: 20 Year
  Sex: Female
  Weight: 74.84 kg

DRUGS (1)
  1. SPIRONOLACTONE 50MG AMNEAL PHARMACY [Suspect]
     Active Substance: SPIRONOLACTONE
     Indication: ACNE
     Dosage: 2 ONCE DAILY TAKEN BY MOUTH
     Route: 048
     Dates: start: 20151228, end: 20160304

REACTIONS (7)
  - Blood pressure decreased [None]
  - Pain [None]
  - Drug ineffective [None]
  - Palpitations [None]
  - Dizziness [None]
  - Dyspnoea [None]
  - Syncope [None]

NARRATIVE: CASE EVENT DATE: 20160130
